FAERS Safety Report 8051698-0 (Version None)
Quarter: 2012Q1

REPORT INFORMATION
  Report Type: 
  Country: None (occurrence: None)
  Receive Date: 20120118
  Receipt Date: 20120110
  Transmission Date: 20120608
  Serious: No
  Sender: FDA-Public Use
  Company Number: US-BIOGENIDEC-2012BI001158

PATIENT
  Age: 45 Year
  Sex: Male

DRUGS (3)
  1. TYSABRI [Suspect]
     Route: 042
     Dates: start: 20111111
  2. COPAXONE [Concomitant]
  3. TYSABRI [Suspect]
     Indication: MULTIPLE SCLEROSIS
     Route: 042
     Dates: start: 20090326, end: 20110520

REACTIONS (4)
  - FACIAL PAIN [None]
  - HYPOAESTHESIA [None]
  - PAIN IN EXTREMITY [None]
  - OPTIC NEURITIS [None]
